FAERS Safety Report 23769695 (Version 1)
Quarter: 2024Q2

REPORT INFORMATION
  Report Type: Spontaneous
  Country: US (occurrence: US)
  Receive Date: 20240422
  Receipt Date: 20240422
  Transmission Date: 20240716
  Serious: Yes (Other)
  Sender: FDA-Public Use
  Company Number: US-AMGEN-USASP2024077875

PATIENT
  Age: 78 Year
  Sex: Male

DRUGS (2)
  1. KYPROLIS [Suspect]
     Active Substance: CARFILZOMIB
     Indication: Plasma cell myeloma
     Dosage: 150 MILLIGRAM, QWK, 2 X 60MG VIAL, DAYS 1, 8, AND 15 FOR A 28 DAY CYCLE
     Route: 065
  2. KYPROLIS [Suspect]
     Active Substance: CARFILZOMIB
     Dosage: 150 MILLIGRAM, QWK 3 X 10MG VIAL, DAYS 1, 8, AND 15 FOR A 28 DAY CYCLE
     Route: 065

REACTIONS (1)
  - Hip surgery [Unknown]

NARRATIVE: CASE EVENT DATE: 20240416
